FAERS Safety Report 7936086-7 (Version None)
Quarter: 2011Q4

REPORT INFORMATION
  Report Type: 
  Country: None (occurrence: None)
  Receive Date: 20111123
  Receipt Date: 20111110
  Transmission Date: 20120403
  Serious: Yes (Other)
  Sender: FDA-Public Use
  Company Number: US-JNJFOC-9715751

PATIENT
  Sex: Female

DRUGS (4)
  1. IBUPROFEN (ADVIL) [Suspect]
     Indication: PAIN
     Route: 048
  2. LISTERINE [Suspect]
     Indication: ILL-DEFINED DISORDER
     Route: 048
  3. PLUMS [Suspect]
     Indication: PRODUCT USED FOR UNKNOWN INDICATION
     Route: 048
  4. ZOLOFT [Suspect]
     Indication: DEPRESSION
     Dosage: FREQUENCY TEXT: DAILY DAILY DOSE QTY: 50 MG
     Route: 048
     Dates: start: 19960101

REACTIONS (8)
  - ADHESIOLYSIS [None]
  - ABDOMINAL PAIN [None]
  - NAUSEA [None]
  - DIARRHOEA [None]
  - GASTROINTESTINAL DISORDER [None]
  - ANAPHYLACTIC REACTION [None]
  - DRUG INEFFECTIVE [None]
  - VOMITING [None]
